FAERS Safety Report 17120015 (Version 1)
Quarter: 2019Q4

REPORT INFORMATION
  Report Type: Spontaneous
  Country: GB (occurrence: GB)
  Receive Date: 20191206
  Receipt Date: 20191206
  Transmission Date: 20200122
  Serious: Yes (Other)
  Sender: FDA-Public Use
  Company Number: NVSC2019GB053729

PATIENT
  Age: 31 Year
  Sex: Female
  Weight: 49.89 kg

DRUGS (1)
  1. CLARITHROMYCIN. [Suspect]
     Active Substance: CLARITHROMYCIN
     Indication: LOCALISED INFECTION
     Dosage: 500 MG, TID
     Route: 048
     Dates: start: 20190920, end: 20190923

REACTIONS (5)
  - Hunger [Recovered/Resolved]
  - Insomnia [Recovered/Resolved]
  - Heart rate increased [Unknown]
  - Anxiety [Recovered/Resolved]
  - Panic attack [Recovered/Resolved]

NARRATIVE: CASE EVENT DATE: 20190920
